FAERS Safety Report 16928153 (Version 1)
Quarter: 2019Q4

REPORT INFORMATION
  Report Type: Spontaneous
  Country: JP (occurrence: JP)
  Receive Date: 20191017
  Receipt Date: 20191017
  Transmission Date: 20200122
  Serious: Yes (Hospitalization, Other)
  Sender: FDA-Public Use
  Company Number: JP-009507513-1812JPN003482J

PATIENT
  Age: 65 Year
  Sex: Male

DRUGS (12)
  1. ETIZOLAM [Concomitant]
     Active Substance: ETIZOLAM
     Dosage: 0.5 MILLIGRAM, QD
     Route: 048
  2. MOSAPRIDE CITRATE HYDRATE [Concomitant]
     Active Substance: MOSAPRIDE CITRATE DIHYDRATE
     Dosage: 5 MILLIGRAM, TID
     Route: 048
  3. TAKECAB [Concomitant]
     Active Substance: VONOPRAZAN FUMURATE
     Dosage: 20 MILLIGRAM, QD
     Route: 048
  4. CELECOX [Concomitant]
     Active Substance: CELECOXIB
     Dosage: 200 MILLIGRAM, BID
     Route: 048
     Dates: end: 20181106
  5. FENTOS [Concomitant]
     Active Substance: FENTANYL
     Dosage: 1 DOSAGE FORM, QD
     Route: 051
  6. SYMPROIC [Concomitant]
     Active Substance: NALDEMEDINE
     Dosage: 0.2 MILLIGRAM, QD
     Route: 048
  7. KEYTRUDA [Suspect]
     Active Substance: PEMBROLIZUMAB
     Indication: NON-SMALL CELL LUNG CANCER
     Dosage: 200 MILLIGRAM, Q3W
     Route: 041
     Dates: start: 20180612, end: 20180612
  8. SENNOSIDE [Concomitant]
     Active Substance: SENNOSIDES
     Dosage: 12 MILLIGRAM, QD
     Route: 048
  9. BAYASPIRIN [Concomitant]
     Active Substance: ASPIRIN
     Dosage: 100 MILLIGRAM, QD
     Route: 048
  10. LYRICA [Concomitant]
     Active Substance: PREGABALIN
     Dosage: 75 MILLIGRAM, BID
     Route: 048
  11. METHAPAIN [Concomitant]
     Active Substance: METHADONE HYDROCHLORIDE
     Dosage: 5 MILLIGRAM, QD
     Route: 048
  12. OXINORM [Concomitant]
     Dosage: 1 DOSAGE FORM, PRN
     Route: 065

REACTIONS (3)
  - Thyroid disorder [Recovering/Resolving]
  - Adrenal insufficiency [Unknown]
  - Adrenocorticotropic hormone deficiency [Unknown]

NARRATIVE: CASE EVENT DATE: 201807
